FAERS Safety Report 12777463 (Version 1)
Quarter: 2016Q3

REPORT INFORMATION
  Report Type: Spontaneous
  Country: US (occurrence: US)
  Receive Date: 20160924
  Receipt Date: 20160924
  Transmission Date: 20161109
  Serious: Yes (Other)
  Sender: FDA-Public Use
  Company Number: US-TEVA-592651USA

PATIENT

DRUGS (3)
  1. CLONAZEPAM. [Suspect]
     Active Substance: CLONAZEPAM
     Indication: HEAD INJURY
     Dosage: 2 MILLIGRAM DAILY;
     Dates: start: 201303
  2. CLONAZEPAM. [Suspect]
     Active Substance: CLONAZEPAM
     Indication: MIGRAINE
  3. CLONAZEPAM. [Suspect]
     Active Substance: CLONAZEPAM
     Indication: ROAD TRAFFIC ACCIDENT

REACTIONS (8)
  - Nightmare [Unknown]
  - Palpitations [Unknown]
  - Feeling abnormal [Unknown]
  - Drug dependence [Unknown]
  - Withdrawal syndrome [Unknown]
  - Hyperhidrosis [Unknown]
  - Mental disorder [Unknown]
  - Anxiety [Unknown]

NARRATIVE: CASE EVENT DATE: 2015
